FAERS Safety Report 25266207 (Version 1)
Quarter: 2025Q2

REPORT INFORMATION
  Report Type: Spontaneous
  Country: IL (occurrence: IL)
  Receive Date: 20250504
  Receipt Date: 20250504
  Transmission Date: 20250716
  Serious: Yes (Other)
  Sender: OXFORD PHARMACEUTICALS, LLC
  Company Number: IL-Oxford Pharmaceuticals, LLC-2176109

PATIENT
  Age: 75 Year
  Sex: Male

DRUGS (7)
  1. LEVETIRACETAM [Suspect]
     Active Substance: LEVETIRACETAM
     Indication: Epilepsy
  2. PHENYTOIN [Concomitant]
     Active Substance: PHENYTOIN
  3. VALPROIC ACID [Concomitant]
     Active Substance: VALPROIC ACID
  4. LACOSAMIDE [Concomitant]
     Active Substance: LACOSAMIDE
  5. CLOBAZAM [Concomitant]
     Active Substance: CLOBAZAM
  6. CARBAMAZEPINE [Concomitant]
     Active Substance: CARBAMAZEPINE
  7. DIAZEPAM [Concomitant]
     Active Substance: DIAZEPAM

REACTIONS (4)
  - Seizure [Unknown]
  - Prescribed overdose [Unknown]
  - Drug ineffective [Unknown]
  - Condition aggravated [Unknown]
